FAERS Safety Report 8241922-3 (Version None)
Quarter: 2012Q1

REPORT INFORMATION
  Report Type: 
  Country: None (occurrence: None)
  Receive Date: 20120329
  Receipt Date: 20120320
  Transmission Date: 20120608
  Serious: Yes (Hospitalization, Other)
  Sender: FDA-Public Use
  Company Number: US-BRISTOL-MYERS SQUIBB COMPANY-16446031

PATIENT
  Age: 56 Year
  Sex: Female
  Weight: 84 kg

DRUGS (12)
  1. METOPROLOL TARTRATE [Suspect]
     Indication: HYPERTENSION
     Route: 048
     Dates: start: 20110916, end: 20111012
  2. PREMPRO [Suspect]
     Indication: ARTHRITIS
     Dosage: 1 DF: 0.625MG/2.5MG
     Route: 048
     Dates: start: 20070101
  3. AXITINIB [Suspect]
     Indication: METASTATIC MALIGNANT MELANOMA
     Dosage: FROM 30NOV2011:3MG TWICE/DAILY 5MG TWICW DAILY,2 WKS ON , 1WK OFF
     Route: 048
     Dates: start: 20110628
  4. MEGACE [Suspect]
     Indication: DECREASED APPETITE
     Dosage: 1 DF: 5CC 5ML/DAY FROM 28NOV11
     Route: 048
     Dates: start: 20110927, end: 20111004
  5. CELEBREX [Suspect]
     Indication: ARTHRITIS
     Route: 048
     Dates: start: 20070101, end: 20111101
  6. MS CONTIN [Concomitant]
     Dates: start: 20110711
  7. CARBOPLATIN [Suspect]
     Indication: METASTATIC MALIGNANT MELANOMA
     Route: 042
     Dates: start: 20111020, end: 20111020
  8. WELLBUTRIN [Concomitant]
     Dates: start: 20030101
  9. CELEBREX [Suspect]
     Indication: MENOPAUSE
     Route: 048
     Dates: start: 20070101, end: 20111101
  10. BENADRYL [Concomitant]
  11. ZOFRAN [Concomitant]
     Dosage: 8HRS AS NEEDED
     Dates: start: 20110501
  12. PACLITAXEL [Suspect]
     Indication: METASTATIC MALIGNANT MELANOMA
     Route: 042
     Dates: start: 20111020, end: 20111020

REACTIONS (2)
  - ANAEMIA [None]
  - VAGINAL HAEMORRHAGE [None]
